FAERS Safety Report 21247370 (Version 1)
Quarter: 2022Q3

REPORT INFORMATION
  Report Type: Spontaneous
  Country: US (occurrence: US)
  Receive Date: 20220824
  Receipt Date: 20220824
  Transmission Date: 20221027
  Serious: Yes (Other)
  Sender: FDA-Public Use
  Company Number: US-SA-SAC20220822000811

PATIENT
  Sex: Male
  Weight: 96 kg

DRUGS (12)
  1. DUPIXENT [Suspect]
     Active Substance: DUPILUMAB
     Indication: Dermatitis atopic
     Dosage: 300 MG, QOW
     Route: 058
     Dates: start: 20210129
  2. HUMIRA [Concomitant]
     Active Substance: ADALIMUMAB
  3. METOPROLOL [Concomitant]
     Active Substance: METOPROLOL
  4. HYDROXYCHLOROQUINE [Concomitant]
     Active Substance: HYDROXYCHLOROQUINE
  5. VYVANSE [Concomitant]
     Active Substance: LISDEXAMFETAMINE DIMESYLATE
  6. LATANOPROST [Concomitant]
     Active Substance: LATANOPROST
  7. DORZOLAMIDE [Concomitant]
     Active Substance: DORZOLAMIDE
  8. OMEPRAZOLE [Concomitant]
     Active Substance: OMEPRAZOLE
  9. AMLODIPINE\OLMESARTAN [Concomitant]
     Active Substance: AMLODIPINE\OLMESARTAN
  10. ALBUTEROL SULFATE [Concomitant]
     Active Substance: ALBUTEROL SULFATE
  11. TRIAMCINOLONE ACETONIDE [Concomitant]
     Active Substance: TRIAMCINOLONE ACETONIDE
  12. PREDNISOLONE ACETATE [Concomitant]
     Active Substance: PREDNISOLONE ACETATE

REACTIONS (5)
  - Uveitis [Unknown]
  - Autoimmune disorder [Unknown]
  - Cataract [Unknown]
  - Sjogren^s syndrome [Unknown]
  - Eczema [Unknown]
